FAERS Safety Report 13688617 (Version 1)
Quarter: 2017Q2

REPORT INFORMATION
  Report Type: Spontaneous
  Country: SG (occurrence: SG)
  Receive Date: 20170626
  Receipt Date: 20170626
  Transmission Date: 20170830
  Serious: Yes (Other)
  Sender: FDA-Public Use
  Company Number: SG-APOTEX-2017AP013240

PATIENT
  Age: 47 Year
  Sex: Female

DRUGS (1)
  1. APO-QUETIAPINE [Suspect]
     Active Substance: QUETIAPINE
     Indication: PSYCHOTIC SYMPTOM
     Dosage: 100 MG AT NIGHT
     Route: 065

REACTIONS (6)
  - Skull fracture [Unknown]
  - Haematemesis [Unknown]
  - Epistaxis [Unknown]
  - Neck pain [Unknown]
  - Dizziness [Recovered/Resolved]
  - Fall [Unknown]
